FAERS Safety Report 6902051-1 (Version None)
Quarter: 2010Q3

REPORT INFORMATION
  Report Type: 
  Country: None (occurrence: None)
  Receive Date: 20100803
  Receipt Date: 20080410
  Transmission Date: 20110219
  Serious: No
  Sender: FDA-Public Use
  Company Number: US-PFIZER INC-2008006745

PATIENT
  Sex: Female
  Weight: 65.3 kg

DRUGS (5)
  1. LYRICA [Suspect]
     Indication: NEURALGIA
     Route: 048
     Dates: start: 20071231, end: 20080101
  2. XANAX [Concomitant]
  3. SYNTHROID [Concomitant]
  4. SITAGLIPTIN [Concomitant]
  5. PLAQUENIL [Concomitant]

REACTIONS (2)
  - DIZZINESS [None]
  - FEELING ABNORMAL [None]
